FAERS Safety Report 5400566-9 (Version None)
Quarter: 2007Q3

REPORT INFORMATION
  Report Type: 
  Country: None (occurrence: None)
  Receive Date: 20070724
  Receipt Date: 20070712
  Transmission Date: 20080115
  Serious: Yes (Hospitalization)
  Sender: FDA-Public Use
  Company Number: ENC200700015

PATIENT
  Age: 67 Year
  Sex: Male

DRUGS (8)
  1. ARGATROBAN [Suspect]
     Indication: CEREBRAL INFARCTION
     Dosage: 6A, QD, INTRAVENOUS
     Route: 042
     Dates: start: 20070124, end: 20070131
  2. RADICUT         (EDARAVONE) [Suspect]
     Indication: CEREBRAL INFARCTION
     Dosage: 30 MG, BID, INTRAVENOUS; 60 MG, QD, INTRAVENOUS
     Route: 042
     Dates: start: 20070125, end: 20070130
  3. RADICUT         (EDARAVONE) [Suspect]
     Indication: CEREBRAL INFARCTION
     Dosage: 30 MG, BID, INTRAVENOUS; 60 MG, QD, INTRAVENOUS
     Route: 042
     Dates: start: 20070124, end: 20070131
  4. CITICOLINE         (CITICOLINE) [Suspect]
     Dosage: 500 ML, QD, INTRAVENOUS
     Route: 042
     Dates: start: 20070124, end: 20070131
  5. DEXTRAN L /00332601/ (CALCIUM CHLORIDE ANHYDROUS, DEXTRAN, POTASSIUM C [Concomitant]
  6. SODIUM CHLORIDE [Concomitant]
  7. KN-3B [Concomitant]
  8. SOLCOSERYL              (BLOOD, CALF, DEPROT., LMW PORTION) [Concomitant]

REACTIONS (1)
  - GRANULOCYTE COUNT DECREASED [None]
